FAERS Safety Report 25453555 (Version 2)
Quarter: 2025Q4

REPORT INFORMATION
  Report Type: Spontaneous
  Country: US (occurrence: US)
  Receive Date: 20250619
  Receipt Date: 20251212
  Transmission Date: 20260118
  Serious: No
  Sender: NOVARTIS
  Company Number: US-002147023-NVSC2025US095384

PATIENT
  Sex: Female

DRUGS (1)
  1. LEQVIO [Suspect]
     Active Substance: INCLISIRAN SODIUM
     Indication: Low density lipoprotein increased
     Dosage: 284 MG (INITIAL DOSE, AGAIN AT 90 DAYS, EVERY 6 MONTHS THEREAFTER)
     Route: 058
     Dates: start: 20250519, end: 20250519

REACTIONS (2)
  - Oropharyngeal pain [Recovered/Resolved]
  - Low density lipoprotein abnormal [Unknown]

NARRATIVE: CASE EVENT DATE: 20250519
